FAERS Safety Report 24446468 (Version 1)
Quarter: 2024Q4

REPORT INFORMATION
  Report Type: Spontaneous
  Country: ES (occurrence: ES)
  Receive Date: 20241016
  Receipt Date: 20241016
  Transmission Date: 20250115
  Serious: Yes (Other)
  Sender: PFIZER
  Company Number: None

PATIENT
  Age: 82 Year
  Sex: Male

DRUGS (4)
  1. CLINDAMYCIN HYDROCHLORIDE [Suspect]
     Active Substance: CLINDAMYCIN HYDROCHLORIDE
     Indication: Tooth extraction
     Dosage: UNK DOSAGE (SCHEDULED IN A PRIVATE CENTER)
     Route: 048
     Dates: start: 20240910, end: 20240912
  2. ASPIRIN\ATORVASTATIN CALCIUM\RAMIPRIL [Concomitant]
     Active Substance: ASPIRIN\ATORVASTATIN CALCIUM\RAMIPRIL
     Dosage: 1 DF, 2X/DAY
     Route: 048
     Dates: start: 20220915
  3. TALTZ [Concomitant]
     Active Substance: IXEKIZUMAB
     Dosage: 80 MG, CYCLIC (FREQ: 5 WK )
     Route: 058
     Dates: start: 20240119
  4. OMEPRAZOL GOBENS [Concomitant]
     Dosage: 20 MG, DAILY
     Route: 048
     Dates: start: 20220915

REACTIONS (2)
  - Dermatitis exfoliative generalised [Recovered/Resolved]
  - Condition aggravated [Recovered/Resolved]

NARRATIVE: CASE EVENT DATE: 20240912
